FAERS Safety Report 7378829-X (Version None)
Quarter: 2011Q1

REPORT INFORMATION
  Report Type: 
  Country: None (occurrence: None)
  Receive Date: 20110328
  Receipt Date: 20110314
  Transmission Date: 20110831
  Serious: Yes (Hospitalization, Other)
  Sender: FDA-Public Use
  Company Number: PHHY2010NL52137

PATIENT
  Sex: Male

DRUGS (19)
  1. ZOMETA [Suspect]
     Dosage: 4 MG/ 5ML
     Dates: start: 20100416
  2. ZOLADEX [Concomitant]
  3. ZOMETA [Suspect]
     Dosage: 4 MG/ 5ML
     Dates: start: 20100705
  4. ZOMETA [Suspect]
     Dosage: 4 MG/ 5ML
     Dates: start: 20101220
  5. ZOMETA [Suspect]
     Dosage: 4 MG/5 ML
     Dates: start: 20110214
  6. PREDNISONE [Concomitant]
  7. NEXIUM [Concomitant]
  8. PARACETAMOL [Concomitant]
  9. ZOMETA [Suspect]
     Dosage: 4 MG/ 5ML
     Dates: start: 20100831
  10. METOPROLOL SUCCINATE [Concomitant]
  11. ZOMETA [Suspect]
     Dosage: 4MG /5 ML
     Dates: start: 20110314
  12. ZOMETA [Suspect]
     Indication: PROSTATE CANCER METASTATIC
     Dosage: 4 MG/ 5ML
     Dates: start: 20100319
  13. ZOMETA [Suspect]
     Dosage: 4 MG/ 5ML
     Dates: start: 20100520
  14. ZOMETA [Suspect]
     Dosage: 4 MG/ 5ML
     Dates: start: 20100805
  15. ZOMETA [Suspect]
     Dosage: 4 MG/ 5ML
     Dates: start: 20101123
  16. AMLODIPINE [Concomitant]
  17. TAMSULOSIN HCL [Concomitant]
     Dosage: UNK
  18. MOVICOLON [Concomitant]
     Dosage: WHEN NEEDED
  19. OXAZEPAM [Concomitant]

REACTIONS (8)
  - MUSCULOSKELETAL PAIN [None]
  - METASTASES TO BONE [None]
  - BONE PAIN [None]
  - BACK PAIN [None]
  - PLEURAL EFFUSION [None]
  - MALAISE [None]
  - MUSCULOSKELETAL CHEST PAIN [None]
  - FEELING COLD [None]
